FAERS Safety Report 4659723-1 (Version None)
Quarter: 2005Q2

REPORT INFORMATION
  Report Type: 
  Country: None (occurrence: None)
  Receive Date: 20050419
  Receipt Date: 20050204
  Transmission Date: 20051028
  Serious: Yes (Other)
  Sender: FDA-Public Use
  Company Number: CHPA2005US00667

PATIENT
  Age: 59 Year
  Sex: Female
  Weight: 66.7 kg

DRUGS (5)
  1. TAVIST [Suspect]
     Indication: NASOPHARYNGITIS
     Dosage: 2 CAPLETS 3-4 TIMES A DAY, ORAL
     Route: 048
  2. PREMARIN [Concomitant]
  3. AFRIN NASAL SPRAY (OXYMETAZOLINE HYDROCHLORIDE) [Concomitant]
  4. IBUPROFEN [Concomitant]
  5. PROMETRIUM [Concomitant]

REACTIONS (5)
  - CONVULSION [None]
  - FEELING ABNORMAL [None]
  - TONGUE BITING [None]
  - URINARY INCONTINENCE [None]
  - VISUAL DISTURBANCE [None]
